FAERS Safety Report 22251009 (Version 1)
Quarter: 2023Q2

REPORT INFORMATION
  Report Type: Report from Study
  Country: US (occurrence: US)
  Receive Date: 20230425
  Receipt Date: 20230425
  Transmission Date: 20230722
  Serious: No
  Sender: FDA-Public Use
  Company Number: US-BIOVITRUM-2023-US-008268

PATIENT
  Age: 65 Year
  Sex: Male

DRUGS (1)
  1. KINERET [Suspect]
     Active Substance: ANAKINRA
     Indication: Product used for unknown indication
     Dosage: ONCE DAILY
     Route: 058
     Dates: start: 20230310

REACTIONS (6)
  - Swelling [Unknown]
  - Injection site induration [Unknown]
  - Contusion [Unknown]
  - Pruritus [Unknown]
  - Burning sensation [Unknown]
  - Injection site mass [Unknown]
